FAERS Safety Report 11205541 (Version 1)
Quarter: 2015Q2

REPORT INFORMATION
  Report Type: Spontaneous
  Country: US (occurrence: US)
  Receive Date: 20150622
  Receipt Date: 20150622
  Transmission Date: 20150821
  Serious: No
  Sender: FDA-Public Use
  Company Number: US-PFIZER INC-2015204067

PATIENT
  Age: 44 Year
  Sex: Female
  Weight: 74.83 kg

DRUGS (8)
  1. PROZAC [Concomitant]
     Active Substance: FLUOXETINE HYDROCHLORIDE
     Indication: DEPRESSION
     Dosage: 40 MG, 1X/DAY
  2. LYRICA [Suspect]
     Active Substance: PREGABALIN
     Indication: FIBROMYALGIA
     Dosage: UNK
     Dates: start: 201412, end: 201506
  3. CELECOXIB. [Suspect]
     Active Substance: CELECOXIB
     Indication: FIBROMYALGIA
     Dosage: 100 MG, 3X/DAY
  4. ALBUTEROL. [Concomitant]
     Active Substance: ALBUTEROL
     Indication: ASTHMA
     Dosage: UNK, AS NEEDED
  5. XANAX [Concomitant]
     Active Substance: ALPRAZOLAM
     Indication: ANXIETY
     Dosage: 1.5 MG, 2X/DAY (1.5 MG IN MORNING, 1.5MG IN EVENING)
  6. XANAX [Concomitant]
     Active Substance: ALPRAZOLAM
     Dosage: AS NECESSARY IN ANXIETY ATTACK
  7. CELECOXIB. [Suspect]
     Active Substance: CELECOXIB
     Dosage: 50 MG IN THE MORNING, 50 MG IN NOON AND 100 MG IN NIGHT
  8. TRAZODONE [Concomitant]
     Active Substance: TRAZODONE HYDROCHLORIDE
     Dosage: 100 MG, ONCE AT NIGHT

REACTIONS (2)
  - Somnolence [Unknown]
  - Pain [Not Recovered/Not Resolved]
